FAERS Safety Report 23967596 (Version 1)
Quarter: 2024Q2

REPORT INFORMATION
  Report Type: Spontaneous
  Country: CN (occurrence: CN)
  Receive Date: 20240612
  Receipt Date: 20240612
  Transmission Date: 20240715
  Serious: Yes (Hospitalization)
  Sender: FDA-Public Use
  Company Number: CN-SHANGHAI JUNSHI BIOSCIENCES CO., LTD.-CN2024010238

PATIENT

DRUGS (4)
  1. TORIPALIMAB [Suspect]
     Active Substance: TORIPALIMAB
     Indication: Tongue cancer recurrent
     Dosage: 240 MG (D1)
     Route: 041
     Dates: start: 20240225, end: 20240225
  2. DOCETAXEL [Suspect]
     Active Substance: DOCETAXEL\DOCETAXEL ANHYDROUS
     Indication: Tongue cancer recurrent
     Dosage: 120 MG (75 MG/M^2, D1)
     Route: 041
     Dates: start: 20240224, end: 20240225
  3. CISPLATIN [Suspect]
     Active Substance: CISPLATIN
     Indication: Tongue cancer recurrent
     Dosage: 120 MG (75 MG/M^2, D1)
     Route: 041
     Dates: start: 20240224, end: 20240225
  4. ERBITUX [Suspect]
     Active Substance: CETUXIMAB
     Indication: Tongue cancer recurrent
     Dosage: 700 MG (400 MG/M^2 FOR THE FIRST TIME, 250 MG/M^2 LATER; D1)
     Route: 041
     Dates: start: 20240223, end: 20240225

REACTIONS (2)
  - Myelosuppression [Recovering/Resolving]
  - Off label use [Unknown]

NARRATIVE: CASE EVENT DATE: 20240225
